FAERS Safety Report 7327092-4 (Version None)
Quarter: 2011Q1

REPORT INFORMATION
  Report Type: 
  Country: None (occurrence: None)
  Receive Date: 20110302
  Receipt Date: 20110221
  Transmission Date: 20110831
  Serious: Yes (Disabling, Other)
  Sender: FDA-Public Use
  Company Number: US-ASTRAZENECA-2009UW10058

PATIENT
  Age: 69 Year
  Sex: Female
  Weight: 73.9 kg

DRUGS (1)
  1. SEROQUEL [Suspect]
     Route: 048

REACTIONS (6)
  - FALL [None]
  - GENERAL PHYSICAL HEALTH DETERIORATION [None]
  - JOINT INJURY [None]
  - SKELETAL INJURY [None]
  - SPEECH DISORDER [None]
  - AMYOTROPHIC LATERAL SCLEROSIS [None]
